FAERS Safety Report 10003991 (Version 1)
Quarter: 2014Q1

REPORT INFORMATION
  Report Type: Spontaneous
  Country: US (occurrence: US)
  Receive Date: 20140312
  Receipt Date: 20140312
  Transmission Date: 20141002
  Serious: No
  Sender: FDA-Public Use
  Company Number: US-INCYTE CORPORATION-2014IN000183

PATIENT
  Sex: Male
  Weight: 64.4 kg

DRUGS (2)
  1. JAKAFI [Suspect]
     Indication: MYELOFIBROSIS
     Dosage: 15 MG, UNK
     Route: 048
  2. VITAMIN B COMPLEX [Concomitant]
     Route: 048

REACTIONS (1)
  - Drug prescribing error [Unknown]
